FAERS Safety Report 8592005-4 (Version None)
Quarter: 2012Q3

REPORT INFORMATION
  Report Type: 
  Country: None (occurrence: None)
  Receive Date: 20120814
  Receipt Date: 20120808
  Transmission Date: 20120928
  Serious: Yes (Hospitalization, Other)
  Sender: FDA-Public Use
  Company Number: DE-PFIZER INC-2012193283

PATIENT
  Age: 76 Year
  Sex: Male

DRUGS (2)
  1. RASILEZ [Suspect]
     Indication: HYPERTENSION
     Dosage: 300 MG, 1X/DAY
     Route: 048
  2. CLINDAMYCIN HCL [Suspect]
     Indication: OSTEOMYELITIS CHRONIC
     Dosage: UNK
     Route: 048

REACTIONS (4)
  - URINE OUTPUT DECREASED [None]
  - OSTEOMYELITIS CHRONIC [None]
  - GLOMERULAR FILTRATION RATE DECREASED [None]
  - BLOOD CREATININE INCREASED [None]
